FAERS Safety Report 8583562-2 (Version None)
Quarter: 2012Q3

REPORT INFORMATION
  Report Type: 
  Country: None (occurrence: None)
  Receive Date: 20120809
  Receipt Date: 20120718
  Transmission Date: 20120928
  Serious: No
  Sender: FDA-Public Use
  Company Number: US-ASTRAZENECA-2012SE50932

PATIENT
  Sex: Female

DRUGS (2)
  1. OMEPRAZOLE [Suspect]
     Route: 048
  2. NEXIUM [Suspect]
     Route: 048

REACTIONS (5)
  - OESOPHAGITIS [None]
  - INTENTIONAL DRUG MISUSE [None]
  - REGURGITATION [None]
  - WEIGHT DECREASED [None]
  - DRUG INEFFECTIVE [None]
